FAERS Safety Report 4535310-0 (Version None)
Quarter: 2004Q4

REPORT INFORMATION
  Report Type: 
  Country: None (occurrence: None)
  Receive Date: 20041214
  Receipt Date: 20040917
  Transmission Date: 20050328
  Serious: No
  Sender: FDA-Public Use
  Company Number: 2004237011US

PATIENT
  Sex: Female

DRUGS (1)
  1. BEXTRA [Suspect]
     Indication: NECK PAIN
     Dosage: 20 MG, PRN

REACTIONS (4)
  - FEELING ABNORMAL [None]
  - HEADACHE [None]
  - ORAL MUCOSAL BLISTERING [None]
  - STOMACH DISCOMFORT [None]
